FAERS Safety Report 13032818 (Version 1)
Quarter: 2016Q4

REPORT INFORMATION
  Report Type: Spontaneous
  Country: US (occurrence: US)
  Receive Date: 20161215
  Receipt Date: 20161215
  Transmission Date: 20170207
  Serious: No
  Sender: FDA-Public Use
  Company Number: US-ACTELION-A-US2016-143413

PATIENT
  Age: 49 Year
  Sex: Female

DRUGS (9)
  1. UPTRAVI [Suspect]
     Active Substance: SELEXIPAG
     Dosage: 1200 MCG, BID
     Route: 048
     Dates: start: 20160925
  2. ADCIRCA [Concomitant]
     Active Substance: TADALAFIL
  3. IRON [Concomitant]
     Active Substance: IRON
  4. DIGOXIN. [Concomitant]
     Active Substance: DIGOXIN
  5. COUMADIN [Concomitant]
     Active Substance: WARFARIN SODIUM
  6. COZAAR [Concomitant]
     Active Substance: LOSARTAN POTASSIUM
  7. UPTRAVI [Suspect]
     Active Substance: SELEXIPAG
     Indication: PULMONARY HYPERTENSION
     Dosage: 1400 MCG, BID
     Route: 048
  8. HYDROCHLOROTHIAZIDE. [Concomitant]
     Active Substance: HYDROCHLOROTHIAZIDE
  9. AMBRISENTAN [Suspect]
     Active Substance: AMBRISENTAN
     Indication: PULMONARY HYPERTENSION
     Dosage: 10 MG, QD
     Route: 065
     Dates: start: 20120702

REACTIONS (8)
  - Vomiting [Unknown]
  - Headache [Unknown]
  - Diarrhoea [Unknown]
  - Fatigue [Unknown]
  - Hypotension [Unknown]
  - Dry mouth [Unknown]
  - Myalgia [Unknown]
  - Dysgeusia [Unknown]

NARRATIVE: CASE EVENT DATE: 20160926
